FAERS Safety Report 12259483 (Version 1)
Quarter: 2016Q2

REPORT INFORMATION
  Report Type: Spontaneous
  Country: US (occurrence: US)
  Receive Date: 20160412
  Receipt Date: 20160412
  Transmission Date: 20160815
  Serious: Yes (Other)
  Sender: FDA-Public Use
  Company Number: US-BAUSCH-BL-2016-007886

PATIENT

DRUGS (1)
  1. ACNEFREE CLEAR SKIN TREATMENTS 24 HOUR SEVERE ACNE CLEARING SYSTEM [Suspect]
     Active Substance: BENZOYL PEROXIDE
     Indication: PRODUCT USED FOR UNKNOWN INDICATION
     Route: 065
     Dates: start: 20160325

REACTIONS (6)
  - Erythema [Unknown]
  - Condition aggravated [Unknown]
  - Throat tightness [Unknown]
  - Eye swelling [Unknown]
  - Hypersensitivity [Unknown]
  - Syncope [Unknown]

NARRATIVE: CASE EVENT DATE: 2016
